FAERS Safety Report 11492174 (Version 10)
Quarter: 2021Q1

REPORT INFORMATION
  Report Type: Report from Study
  Country: CA (occurrence: CA)
  Receive Date: 20150910
  Receipt Date: 20210322
  Transmission Date: 20210419
  Serious: Yes (Disabling, Other)
  Sender: FDA-Public Use
  Company Number: PHHY2015CA070257

PATIENT
  Sex: Male

DRUGS (5)
  1. CLOBETASOL [Concomitant]
     Active Substance: CLOBETASOL
     Indication: PRODUCT USED FOR UNKNOWN INDICATION
     Dosage: UNK
     Route: 065
  2. METHOTREXATE. [Suspect]
     Active Substance: METHOTREXATE
     Indication: PRODUCT USED FOR UNKNOWN INDICATION
     Dosage: UNK
     Route: 065
     Dates: start: 201309
  3. CICLOSPORIN [Suspect]
     Active Substance: CYCLOSPORINE
     Indication: PSORIASIS
     Dosage: UNK
     Route: 065
     Dates: start: 2005
  4. COSENTYX [Suspect]
     Active Substance: SECUKINUMAB
     Indication: PSORIASIS
     Dosage: 300 MG, QMO
     Route: 058
     Dates: start: 20150806
  5. COSENTYX [Suspect]
     Active Substance: SECUKINUMAB
     Dosage: 300 MG, QMO
     Route: 058
     Dates: start: 20180203

REACTIONS (11)
  - Drug ineffective [Unknown]
  - Skin plaque [Unknown]
  - Obesity [Unknown]
  - Pain [Unknown]
  - Scratch [Unknown]
  - Discomfort [Unknown]
  - Social anxiety disorder [Unknown]
  - Blood triglycerides increased [Unknown]
  - Pruritus [Unknown]
  - Psoriasis [Not Recovered/Not Resolved]
  - Skin haemorrhage [Unknown]
